FAERS Safety Report 16081921 (Version 1)
Quarter: 2019Q1

REPORT INFORMATION
  Report Type: Spontaneous
  Country: AU (occurrence: AU)
  Receive Date: 20190317
  Receipt Date: 20190317
  Transmission Date: 20190418
  Serious: Yes (Other)
  Sender: FDA-Public Use
  Company Number: AU-ROCHE-2244573

PATIENT
  Age: 53 Year
  Sex: Female
  Weight: 96 kg

DRUGS (4)
  1. PREDNISONE. [Concomitant]
     Active Substance: PREDNISONE
     Dosage: HALF 25 MG
     Route: 048
     Dates: start: 201707
  2. TAXOL [Concomitant]
     Active Substance: PACLITAXEL
  3. FISH OIL [Concomitant]
     Active Substance: FISH OIL
  4. HERCEPTIN [Suspect]
     Active Substance: TRASTUZUMAB
     Indication: BREAST CANCER
     Dosage: DOSE: 1 (SUSPECTED)
     Route: 042
     Dates: start: 201704, end: 201805

REACTIONS (8)
  - Hypothyroidism [Unknown]
  - Dyspnoea [Unknown]
  - Nausea [Unknown]
  - Fatigue [Unknown]
  - Chest discomfort [Unknown]
  - Insomnia [Unknown]
  - Obesity [Unknown]
  - Weight increased [Not Recovered/Not Resolved]

NARRATIVE: CASE EVENT DATE: 201712
